FAERS Safety Report 7688798-0 (Version None)
Quarter: 2011Q3

REPORT INFORMATION
  Report Type: 
  Country: None (occurrence: None)
  Receive Date: 20110817
  Receipt Date: 20110810
  Transmission Date: 20111222
  Serious: Yes (Hospitalization, Other)
  Sender: FDA-Public Use
  Company Number: US-ASTRAZENECA-2011SE48138

PATIENT
  Sex: Female

DRUGS (3)
  1. TRICOR [Concomitant]
  2. CRESTOR [Suspect]
     Route: 048
  3. PLAVIX [Concomitant]

REACTIONS (2)
  - MYOCARDIAL INFARCTION [None]
  - IMPLANTABLE DEFIBRILLATOR INSERTION [None]
